FAERS Safety Report 19144942 (Version 1)
Quarter: 2021Q2

REPORT INFORMATION
  Report Type: Spontaneous
  Country: US (occurrence: US)
  Receive Date: 20210416
  Receipt Date: 20210416
  Transmission Date: 20210717
  Serious: No
  Sender: FDA-Public Use
  Company Number: None

PATIENT
  Age: 62 Year
  Sex: Male

DRUGS (1)
  1. BOTOX [Suspect]
     Active Substance: ONABOTULINUMTOXINA
     Dosage: OTHER FREQUENCY:OTHER;?
     Route: 030
     Dates: start: 201904, end: 202104

REACTIONS (3)
  - Hypoaesthesia [None]
  - Facial paralysis [None]
  - Facial spasm [None]

NARRATIVE: CASE EVENT DATE: 20190401
